FAERS Safety Report 18706120 (Version 2)
Quarter: 2021Q1

REPORT INFORMATION
  Report Type: Report from Study
  Country: US (occurrence: US)
  Receive Date: 20210106
  Receipt Date: 20210301
  Transmission Date: 20210419
  Serious: Yes (Death, Other)
  Sender: FDA-Public Use
  Company Number: US-ASTELLAS-2020US034642

PATIENT
  Sex: Male

DRUGS (1)
  1. ASP2215 [Suspect]
     Active Substance: GILTERITINIB
     Indication: ACUTE MYELOID LEUKAEMIA
     Route: 048
     Dates: start: 20200904

REACTIONS (11)
  - Stomatitis [Unknown]
  - Respiratory tract infection [Unknown]
  - Illness [Unknown]
  - Muscle spasms [Unknown]
  - Product availability issue [Unknown]
  - Death [Fatal]
  - Red blood cell count decreased [Unknown]
  - Peripheral swelling [Unknown]
  - Urticaria [Recovered/Resolved]
  - Haemoglobin decreased [Unknown]
  - Platelet count decreased [Unknown]
